FAERS Safety Report 5128678-8 (Version None)
Quarter: 2006Q4

REPORT INFORMATION
  Report Type: 
  Country: None (occurrence: None)
  Receive Date: 20061017
  Receipt Date: 20061010
  Transmission Date: 20070319
  Serious: Yes (Hospitalization)
  Sender: FDA-Public Use
  Company Number: 2006CG01665

PATIENT
  Age: 35 Year
  Sex: Female

DRUGS (1)
  1. NAROPIN [Suspect]
     Indication: SPINAL ANAESTHESIA
     Route: 037
     Dates: start: 20061009, end: 20061009

REACTIONS (1)
  - NEUROMUSCULAR BLOCK PROLONGED [None]
